FAERS Safety Report 7626803-8 (Version None)
Quarter: 2011Q3

REPORT INFORMATION
  Report Type: 
  Country: None (occurrence: None)
  Receive Date: 20110721
  Receipt Date: 20110711
  Transmission Date: 20111222
  Serious: No
  Sender: FDA-Public Use
  Company Number: US-BAYER-2011-060218

PATIENT
  Age: 64 Year
  Sex: Female
  Weight: 66.667 kg

DRUGS (1)
  1. BETASERON [Suspect]
     Dosage: 0.3 MG, QOD
     Dates: start: 20050101

REACTIONS (2)
  - RASH PAPULAR [None]
  - RASH ERYTHEMATOUS [None]
